FAERS Safety Report 21099176 (Version 15)
Quarter: 2023Q2

REPORT INFORMATION
  Report Type: Spontaneous
  Country: US (occurrence: US)
  Receive Date: 20220719
  Receipt Date: 20230517
  Transmission Date: 20230721
  Serious: Yes (Hospitalization, Other)
  Sender: FDA-Public Use
  Company Number: US-GLAXOSMITHKLINE-US2022AMR107665

PATIENT

DRUGS (3)
  1. ZEJULA [Suspect]
     Active Substance: NIRAPARIB
     Indication: Genital neoplasm malignant female
     Dosage: 200 MG, QD
  2. ZEJULA [Suspect]
     Active Substance: NIRAPARIB
     Indication: Ovarian cancer
     Dosage: 100 MG, QD ( 1 CAPSULE PER DAY)
     Dates: start: 20220907
  3. ZEJULA [Suspect]
     Active Substance: NIRAPARIB
     Dosage: 100 MG, QD
     Dates: start: 20230319

REACTIONS (15)
  - Kidney infection [Unknown]
  - Renal impairment [Not Recovered/Not Resolved]
  - Anaemia [Unknown]
  - Cystitis [Unknown]
  - Stent placement [Unknown]
  - Thrombosis [Unknown]
  - Acute kidney injury [Unknown]
  - Nausea [Recovered/Resolved]
  - Blood pressure increased [Unknown]
  - Platelet count decreased [Not Recovered/Not Resolved]
  - Electrocardiogram abnormal [Unknown]
  - Headache [Recovering/Resolving]
  - Haemoglobin decreased [Unknown]
  - Full blood count abnormal [Unknown]
  - Product dose omission issue [Unknown]
